FAERS Safety Report 4765414-9 (Version None)
Quarter: 2005Q3

REPORT INFORMATION
  Report Type: 
  Country: None (occurrence: None)
  Receive Date: 20050908
  Receipt Date: 20050824
  Transmission Date: 20060218
  Serious: Yes (Death)
  Sender: FDA-Public Use
  Company Number: 2005-DE-03403GD

PATIENT
  Age: 34 Year
  Sex: Female

DRUGS (2)
  1. CYCLOPHOSPHAMIDE [Suspect]
     Indication: BONE MARROW CONDITIONING REGIMEN
     Dosage: HIGH DOSE
     Dates: start: 19880101
  2. BUSULPHAN (BUSULFAN) [Suspect]
     Indication: BONE MARROW CONDITIONING REGIMEN
     Dosage: HIGH DOSE
     Dates: start: 19880101

REACTIONS (7)
  - ANAEMIA [None]
  - ENCEPHALOPATHY [None]
  - GENERAL PHYSICAL HEALTH DETERIORATION [None]
  - HEPATIC FAILURE [None]
  - HEPATIC RUPTURE [None]
  - HEPATOMEGALY [None]
  - VENOOCCLUSIVE LIVER DISEASE [None]
